FAERS Safety Report 8768013 (Version 2)
Quarter: 2013Q1

REPORT INFORMATION
  Report Type: Report from Study
  Country: JP (occurrence: JP)
  Receive Date: 20120906
  Receipt Date: 20130215
  Transmission Date: 20140127
  Serious: Yes (Hospitalization)
  Sender: FDA-Public Use
  Company Number: JP-B.I. PHARMACEUTICALS,INC./RIDGEFIELD-2012-BP-21011NB

PATIENT
  Age: 74 Year
  Sex: Male
  Weight: 66 kg

DRUGS (1)
  1. PRAZAXA [Suspect]
     Indication: THROMBOSIS PROPHYLAXIS
     Dosage: 220 MG
     Route: 048
     Dates: start: 20120423, end: 20120625

REACTIONS (2)
  - Cerebral infarction [Recovered/Resolved]
  - Drug ineffective [Unknown]
